FAERS Safety Report 7261796-7 (Version None)
Quarter: 2011Q1

REPORT INFORMATION
  Report Type: 
  Country: None (occurrence: None)
  Receive Date: 20110130
  Receipt Date: 20101130
  Transmission Date: 20110831
  Serious: No
  Sender: FDA-Public Use
  Company Number: US-ABBOTT-10P-163-0688681-00

PATIENT
  Age: 30 Year
  Sex: Female

DRUGS (2)
  1. HUMIRA [Suspect]
     Indication: CROHN'S DISEASE
     Dates: start: 20100801
  2. SEASONALE [Concomitant]
     Indication: ORAL CONTRACEPTION

REACTIONS (4)
  - NASOPHARYNGITIS [None]
  - NASAL CONGESTION [None]
  - THROAT IRRITATION [None]
  - COUGH [None]
